APPROVED DRUG PRODUCT: NORETHINDRONE ACETATE AND ETHINYL ESTRADIOL
Active Ingredient: ETHINYL ESTRADIOL; NORETHINDRONE ACETATE
Strength: 0.02MG,0.03MG,0.035MG;1MG,1MG,1MG
Dosage Form/Route: TABLET;ORAL-28
Application: A076629 | Product #001
Applicant: DR REDDYS LABORATORIES SA
Approved: Mar 18, 2010 | RLD: No | RS: No | Type: DISCN